FAERS Safety Report 5769316-0 (Version None)
Quarter: 2008Q2

REPORT INFORMATION
  Report Type: 
  Country: None (occurrence: None)
  Receive Date: 20080610
  Receipt Date: 20080602
  Transmission Date: 20081010
  Serious: Yes (Hospitalization, Other)
  Sender: FDA-Public Use
  Company Number: 163-21880-08050980

PATIENT
  Age: 75 Year
  Sex: Male
  Weight: 109.3169 kg

DRUGS (6)
  1. REVLIMID [Suspect]
     Indication: MULTIPLE MYELOMA
     Dosage: 25 MG, DAILY FOR 21 DAYS, ORAL
     Route: 048
     Dates: start: 20080212
  2. ZOMETA (ZOLEDRNIC ACID) [Concomitant]
  3. LUNESTA [Concomitant]
  4. MELOXICAM [Concomitant]
  5. VITAMIN B12 [Concomitant]
  6. EXTRA STRENGTH TYLENOL [Concomitant]

REACTIONS (2)
  - FLUID OVERLOAD [None]
  - PULMONARY OEDEMA [None]
